FAERS Safety Report 5227267-4 (Version None)
Quarter: 2007Q1

REPORT INFORMATION
  Report Type: 
  Country: None (occurrence: None)
  Receive Date: 20070202
  Receipt Date: 20070123
  Transmission Date: 20070707
  Serious: Yes (Hospitalization)
  Sender: FDA-Public Use
  Company Number: FR-BRISTOL-MYERS SQUIBB COMPANY-13655063

PATIENT
  Age: 81 Year
  Sex: Female

DRUGS (6)
  1. COUMADIN [Suspect]
     Route: 048
     Dates: start: 20061010, end: 20061213
  2. OMEPRAZOLE [Suspect]
     Route: 048
     Dates: start: 20060925, end: 20061215
  3. INNOHEP [Concomitant]
     Dates: start: 20061018, end: 20061214
  4. ACETAMINOPHEN AND TRAMADOL HCL [Concomitant]
     Dates: start: 20060920, end: 20061205
  5. LOVENOX [Concomitant]
     Dates: start: 20060925, end: 20061218
  6. ORGARAN [Concomitant]
     Dates: start: 20061213, end: 20061218

REACTIONS (1)
  - THROMBOCYTOPENIA [None]
